FAERS Safety Report 7506172-4 (Version None)
Quarter: 2011Q2

REPORT INFORMATION
  Report Type: 
  Country: None (occurrence: None)
  Receive Date: 20110526
  Receipt Date: 20110520
  Transmission Date: 20111010
  Serious: No
  Sender: FDA-Public Use
  Company Number: US-PFIZER INC-2011109876

PATIENT
  Sex: Female
  Weight: 48.073 kg

DRUGS (1)
  1. ADVIL LIQUI-GELS [Suspect]
     Dosage: 400 MG, UNK
     Route: 048
     Dates: start: 20110519

REACTIONS (1)
  - BLOOD GLUCOSE INCREASED [None]
